FAERS Safety Report 24357965 (Version 1)
Quarter: 2024Q3

REPORT INFORMATION
  Report Type: Spontaneous
  Country: TR (occurrence: TR)
  Receive Date: 20240924
  Receipt Date: 20240924
  Transmission Date: 20241016
  Serious: Yes (Hospitalization, Other)
  Sender: BAXTER
  Company Number: TR-BAXTER-2024BAX024851

PATIENT
  Age: 23 Year
  Sex: Male
  Weight: 95 kg

DRUGS (8)
  1. DOXORUBICIN [Suspect]
     Active Substance: DOXORUBICIN
     Indication: Hodgkin^s disease nodular sclerosis
     Dosage: (ABVD) CHEMOTHERAPY BY  CALCULATING THE BODY SURFACE AREA BASED ON THE CORRECTED BODY WEIGHT.
     Route: 065
  2. DOXORUBICIN [Suspect]
     Active Substance: DOXORUBICIN
     Indication: Hodgkin^s disease
  3. BLEOMYCIN [Suspect]
     Active Substance: BLEOMYCIN SULFATE
     Indication: Hodgkin^s disease nodular sclerosis
     Dosage: (ABVD) CHEMOTHERAPY BY  CALCULATING THE BODY SURFACE AREA BASED ON THE CORRECTED BODY WEIGHT.
     Route: 065
  4. BLEOMYCIN [Suspect]
     Active Substance: BLEOMYCIN SULFATE
     Indication: Hodgkin^s disease
  5. VINBLASTINE [Suspect]
     Active Substance: VINBLASTINE
     Indication: Hodgkin^s disease nodular sclerosis
     Dosage: (ABVD) CHEMOTHERAPY BY  CALCULATING THE BODY SURFACE AREA BASED ON THE CORRECTED BODY WEIGHT.
     Route: 065
  6. VINBLASTINE [Suspect]
     Active Substance: VINBLASTINE
     Indication: Hodgkin^s disease
  7. DACARBAZINE [Suspect]
     Active Substance: DACARBAZINE
     Indication: Hodgkin^s disease nodular sclerosis
     Dosage: (ABVD) CHEMOTHERAPY BY  CALCULATING THE BODY SURFACE AREA BASED ON THE CORRECTED BODY WEIGHT.
     Route: 065
  8. DACARBAZINE [Suspect]
     Active Substance: DACARBAZINE
     Indication: Hodgkin^s disease

REACTIONS (2)
  - Acute myocardial infarction [Recovered/Resolved]
  - Chest pain [Unknown]
